FAERS Safety Report 16295673 (Version 1)
Quarter: 2019Q2

REPORT INFORMATION
  Report Type: Spontaneous
  Country: FR (occurrence: FR)
  Receive Date: 20190510
  Receipt Date: 20190510
  Transmission Date: 20190711
  Serious: Yes (Disabling)
  Sender: FDA-Public Use
  Company Number: FR-ASTRAZENECA-2019SE69995

PATIENT
  Age: 84 Year
  Sex: Female
  Weight: 60.3 kg

DRUGS (12)
  1. HEMIGOXINE NATIVELLE [Concomitant]
     Active Substance: DIGOXIN
  2. PANTOPRAZOLE [Concomitant]
     Active Substance: PANTOPRAZOLE
  3. BISOCE [Concomitant]
     Active Substance: BISOPROLOL
  4. PREVISCAN (FLUINDIONE) [Suspect]
     Active Substance: FLUINDIONE
     Indication: ATRIAL FIBRILLATION
     Route: 048
     Dates: end: 20190408
  5. SYMBICORT [Suspect]
     Active Substance: BUDESONIDE\FORMOTEROL FUMARATE DIHYDRATE
     Indication: LUNG DISORDER
     Dosage: 3 DF, DAILY
     Route: 055
     Dates: start: 20190406, end: 20190408
  6. RAMIPRIL. [Concomitant]
     Active Substance: RAMIPRIL
  7. FUROSEMIDE. [Concomitant]
     Active Substance: FUROSEMIDE
  8. PREDNISONE. [Concomitant]
     Active Substance: PREDNISONE
  9. DOLIPRANE [Concomitant]
     Active Substance: ACETAMINOPHEN
  10. ALLOPURINOL. [Concomitant]
     Active Substance: ALLOPURINOL
  11. AUGMENTIN [Concomitant]
     Active Substance: AMOXICILLIN\CLAVULANATE POTASSIUM
  12. IDEOS [Concomitant]
     Active Substance: CALCIUM CARBONATE\CHOLECALCIFEROL

REACTIONS (2)
  - Ischaemic stroke [Recovered/Resolved with Sequelae]
  - International normalised ratio fluctuation [Recovered/Resolved with Sequelae]

NARRATIVE: CASE EVENT DATE: 20190408
